FAERS Safety Report 12747430 (Version 1)
Quarter: 2016Q3

REPORT INFORMATION
  Report Type: Spontaneous
  Country: US (occurrence: US)
  Receive Date: 20160915
  Receipt Date: 20160915
  Transmission Date: 20161109
  Serious: No
  Sender: FDA-Public Use
  Company Number: US-JAZZ-2016-US-009754

PATIENT
  Sex: Female

DRUGS (26)
  1. XYREM [Suspect]
     Active Substance: SODIUM OXYBATE
     Dosage: 4.25 G, BID
     Route: 048
     Dates: start: 200812
  2. SPRINTEC [Concomitant]
     Active Substance: ETHINYL ESTRADIOL\NORGESTIMATE
  3. TIROSINT [Concomitant]
     Active Substance: LEVOTHYROXINE SODIUM
  4. LIDODERM [Concomitant]
     Active Substance: LIDOCAINE
  5. XYREM [Suspect]
     Active Substance: SODIUM OXYBATE
     Dosage: 3.5 G, BID
     Route: 048
     Dates: start: 200409, end: 2005
  6. BISOPROLOL FUMARATE. [Concomitant]
     Active Substance: BISOPROLOL FUMARATE
  7. PROAIR HFA [Concomitant]
     Active Substance: ALBUTEROL SULFATE
  8. XYREM [Suspect]
     Active Substance: SODIUM OXYBATE
     Dosage: 3.5 G, BID
     Route: 048
     Dates: start: 200605, end: 200609
  9. TIZANIDINE HCL [Concomitant]
     Active Substance: TIZANIDINE HYDROCHLORIDE
  10. XOPENEX HFA [Concomitant]
     Active Substance: LEVALBUTEROL TARTRATE
  11. TRAMADOL ER [Concomitant]
     Active Substance: TRAMADOL HYDROCHLORIDE
  12. DEPAKOTE [Concomitant]
     Active Substance: DIVALPROEX SODIUM
  13. ARMOUR THYROID [Concomitant]
     Active Substance: THYROID, PORCINE
  14. CLONAZEPAM. [Concomitant]
     Active Substance: CLONAZEPAM
  15. MUCINEX ER [Concomitant]
  16. ZOLPIDEM TARTRATE. [Concomitant]
     Active Substance: ZOLPIDEM TARTRATE
  17. XYREM [Suspect]
     Active Substance: SODIUM OXYBATE
     Indication: SLEEP DISORDER
     Dosage: 3 G, BID
     Route: 048
     Dates: start: 200402, end: 200409
  18. BIOTIN [Concomitant]
     Active Substance: BIOTIN
  19. MELATONIN TR [Concomitant]
  20. SUMATRIPTAN SUCCINATE. [Concomitant]
     Active Substance: SUMATRIPTAN SUCCINATE
  21. PRILOSEC [Concomitant]
     Active Substance: OMEPRAZOLE MAGNESIUM
  22. XYREM [Suspect]
     Active Substance: SODIUM OXYBATE
     Dosage: DOSE ADJUSTMENTS
     Route: 048
  23. NORCO [Concomitant]
     Active Substance: ACETAMINOPHEN\HYDROCODONE BITARTRATE
  24. ADVAIR HFA [Concomitant]
     Active Substance: FLUTICASONE PROPIONATE\SALMETEROL XINAFOATE
  25. DILTIAZEM ER [Concomitant]
     Active Substance: DILTIAZEM
  26. ALLEGRA ALLERGY [Concomitant]
     Active Substance: FEXOFENADINE HYDROCHLORIDE

REACTIONS (2)
  - Malaise [Unknown]
  - Blood pressure increased [Unknown]
